FAERS Safety Report 7734664-1 (Version None)
Quarter: 2011Q3

REPORT INFORMATION
  Report Type: 
  Country: None (occurrence: None)
  Receive Date: 20110907
  Receipt Date: 20110526
  Transmission Date: 20111222
  Serious: Yes (Death, Life-Threatening)
  Sender: FDA-Public Use
  Company Number: GB-MERCK-1105GBR00099

PATIENT
  Age: 49 Year
  Sex: Female
  Weight: 108 kg

DRUGS (12)
  1. ACETAMINOPHEN AND CODEINE PHOSPHATE [Concomitant]
     Route: 065
  2. JANUVIA [Suspect]
     Indication: DIABETES MELLITUS
     Route: 048
     Dates: start: 20101115, end: 20110317
  3. CARVEDILOL [Concomitant]
     Route: 065
  4. ROSUVASTATIN CALCIUM [Concomitant]
     Route: 065
  5. NITROGLYCERIN [Concomitant]
     Route: 065
  6. ISOSORBIDE MONONITRATE [Concomitant]
     Route: 065
  7. RAMIPRIL [Concomitant]
     Route: 065
  8. ORLISTAT [Concomitant]
     Route: 065
     Dates: start: 20100929
  9. AMLODIPINE [Concomitant]
     Route: 065
  10. METFORMIN [Concomitant]
     Route: 065
  11. ASPIRIN [Concomitant]
     Route: 065
  12. FUROSEMIDE [Concomitant]
     Route: 065

REACTIONS (3)
  - DEATH [None]
  - MUSCLE SPASMS [None]
  - PERIPHERAL COLDNESS [None]
